FAERS Safety Report 21841754 (Version 3)
Quarter: 2023Q1

REPORT INFORMATION
  Report Type: Report from Study
  Country: US (occurrence: US)
  Receive Date: 20230110
  Receipt Date: 20230329
  Transmission Date: 20230417
  Serious: Yes (Other)
  Sender: FDA-Public Use
  Company Number: US-ABBVIE-4226496

PATIENT
  Age: 55 Year
  Sex: Female

DRUGS (3)
  1. SKYRIZI [Suspect]
     Active Substance: RISANKIZUMAB-RZAA
     Indication: Psoriasis
     Route: 058
     Dates: start: 20220506, end: 202208
  2. SKYRIZI [Suspect]
     Active Substance: RISANKIZUMAB-RZAA
     Route: 058
     Dates: start: 20230323
  3. BACTRIM [Suspect]
     Active Substance: SULFAMETHOXAZOLE\TRIMETHOPRIM
     Indication: Product used for unknown indication
     Dosage: BACTRIM CLEOCIN
     Route: 065

REACTIONS (21)
  - Gastrointestinal disorder [Unknown]
  - Diarrhoea [Unknown]
  - Cellulitis [Unknown]
  - Haemorrhoids [Unknown]
  - Drug hypersensitivity [Unknown]
  - Psoriasis [Unknown]
  - Peripheral swelling [Unknown]
  - Cold sweat [Unknown]
  - Hyperhidrosis [Unknown]
  - Flushing [Unknown]
  - Blood pressure increased [Unknown]
  - Injection site swelling [Unknown]
  - Rectal haemorrhage [Unknown]
  - Unevaluable event [Unknown]
  - Erythema [Unknown]
  - Inflammation [Unknown]
  - Injection site papule [Unknown]
  - Injection site erythema [Unknown]
  - Injection site bruising [Unknown]
  - Injection site warmth [Unknown]
  - Wound haemorrhage [Unknown]

NARRATIVE: CASE EVENT DATE: 20221101
